FAERS Safety Report 20516612 (Version 1)
Quarter: 2022Q1

REPORT INFORMATION
  Report Type: Spontaneous
  Country: AU (occurrence: AU)
  Receive Date: 20220225
  Receipt Date: 20220225
  Transmission Date: 20220423
  Serious: Yes (Death, Life-Threatening, Hospitalization, Other)
  Sender: FDA-Public Use
  Company Number: AU-MLMSERVICE-20220210-3365924-1

PATIENT
  Age: 67 Year
  Sex: Male

DRUGS (10)
  1. MYCOPHENOLATE MOFETIL [Suspect]
     Active Substance: MYCOPHENOLATE MOFETIL
     Indication: Immunosuppressant drug therapy
     Dates: end: 2020
  2. TACROLIMUS [Suspect]
     Active Substance: TACROLIMUS
     Indication: Immunosuppressant drug therapy
     Dates: end: 2020
  3. PREDNISOLONE [Suspect]
     Active Substance: PREDNISOLONE
     Indication: Immunosuppressant drug therapy
  4. MAGNESIUM ASPARTATE HYDROCHLORIDE [Concomitant]
     Active Substance: MAGNESIUM ASPARTATE HYDROCHLORIDE
  5. ATENOLOL [Concomitant]
     Active Substance: ATENOLOL
     Dosage: NOCTE
  6. VITAMIN B3 [Concomitant]
     Active Substance: NIACIN
  7. IRBESARTAN [Concomitant]
     Active Substance: IRBESARTAN
     Dosage: NOCTE
  8. CHOLECALCIFEROL [Concomitant]
     Active Substance: CHOLECALCIFEROL
  9. FISH OIL [Concomitant]
     Active Substance: FISH OIL
  10. VITAMIN C [Concomitant]
     Active Substance: ASCORBIC ACID

REACTIONS (11)
  - Weight decreased [Unknown]
  - Peripheral sensory neuropathy [Unknown]
  - Meningitis cryptococcal [Fatal]
  - Hyponatraemia [Unknown]
  - Encephalopathy [Unknown]
  - Fall [Unknown]
  - Inappropriate antidiuretic hormone secretion [Unknown]
  - Parkinsonism [Unknown]
  - Cerebral infarction [Unknown]
  - Dementia [Unknown]
  - Cerebral small vessel ischaemic disease [Unknown]
